FAERS Safety Report 4704512-2 (Version None)
Quarter: 2005Q2

REPORT INFORMATION
  Report Type: 
  Country: None (occurrence: None)
  Receive Date: 20050629
  Receipt Date: 20050620
  Transmission Date: 20051028
  Serious: Yes (Hospitalization)
  Sender: FDA-Public Use
  Company Number: 033-1343-M0200045

PATIENT
  Age: 1 Day
  Sex: Female
  Weight: 3.01 kg

DRUGS (4)
  1. VIRACEPT [Suspect]
     Indication: HIV INFECTION
     Dosage: 2500 MG (DAILY), PLACENTAL
     Route: 064
     Dates: end: 20000804
  2. VIDEX [Suspect]
     Indication: INFECTION PROPHYLAXIS
     Dosage: (DAILY), PLACENTAL
     Route: 064
     Dates: end: 20000804
  3. ZERIT [Suspect]
     Indication: INFECTION PROPHYLAXIS
     Dosage: 60 MG (DAILY), PLACENTAL
     Route: 064
     Dates: end: 20000804
  4. RETROVIR [Suspect]
     Indication: INFECTION PROPHYLAXIS
     Dosage: (DAILY), PLACENTAL
     Route: 064
     Dates: start: 20000804, end: 20000804

REACTIONS (16)
  - ALANINE AMINOTRANSFERASE INCREASED [None]
  - ANAEMIA NEONATAL [None]
  - ASPARTATE AMINOTRANSFERASE INCREASED [None]
  - BLOOD CREATINE PHOSPHOKINASE INCREASED [None]
  - BLOOD KETONE BODY INCREASED [None]
  - BLOOD LACTIC ACID INCREASED [None]
  - DRUG EXPOSURE DURING PREGNANCY [None]
  - GAMMA-GLUTAMYLTRANSFERASE INCREASED [None]
  - HYPERTRIGLYCERIDAEMIA [None]
  - HYPOTONIA NEONATAL [None]
  - LACTATE PYRUVATE RATIO INCREASED [None]
  - MATERNAL CONDITION AFFECTING FOETUS [None]
  - MICROCYTIC ANAEMIA [None]
  - NEONATAL DISORDER [None]
  - NEONATAL HEPATOMEGALY [None]
  - PLATELET COUNT INCREASED [None]
